FAERS Safety Report 7743686-6 (Version None)
Quarter: 2011Q3

REPORT INFORMATION
  Report Type: 
  Country: None (occurrence: None)
  Receive Date: 20110912
  Receipt Date: 20110901
  Transmission Date: 20111222
  Serious: Yes (Other)
  Sender: FDA-Public Use
  Company Number: GB-ELI_LILLY_AND_COMPANY-GB201108003573

PATIENT
  Age: 60 Year
  Sex: Male
  Weight: 94 kg

DRUGS (2)
  1. BYETTA [Suspect]
     Dosage: UNK
  2. METFORMIN HCL [Concomitant]
     Dosage: UNK

REACTIONS (3)
  - FLATULENCE [None]
  - GASTROINTESTINAL CARCINOMA [None]
  - ERUCTATION [None]
